FAERS Safety Report 9790203 (Version 2)
Quarter: 2014Q1

REPORT INFORMATION
  Report Type: Spontaneous
  Country: US (occurrence: US)
  Receive Date: 20131231
  Receipt Date: 20140114
  Transmission Date: 20141002
  Serious: Yes (Death)
  Sender: FDA-Public Use
  Company Number: US-AMGEN-USASP2013090941

PATIENT
  Age: 87 Year
  Sex: Male
  Weight: 92.97 kg

DRUGS (17)
  1. PROLIA [Suspect]
     Indication: OSTEOPOROSIS
     Route: 065
  2. ALBUTEROL SULFATE [Concomitant]
     Dosage: 2.5 MG/ML, BID
     Dates: start: 20131007
  3. FUROSEMIDE [Concomitant]
     Dosage: 40 MG, TID
     Dates: start: 20131115
  4. BUDESONIDE [Concomitant]
     Dosage: 0.5 MG, BID
     Dates: start: 20131007
  5. BICALUTAMIDE [Concomitant]
     Dosage: 50 MG, QHS
     Route: 048
     Dates: start: 20130321
  6. MULTIVITAMIN                       /00097801/ [Concomitant]
     Dosage: UNK UNK, QD
     Route: 048
     Dates: start: 20130114
  7. VITAMIN C                          /00008001/ [Concomitant]
     Dosage: 500 MG, QD
     Route: 048
     Dates: start: 20130219
  8. HYDRALAZINE [Concomitant]
     Dosage: 10 MG, QD
     Route: 048
     Dates: start: 20131112
  9. AMLODIPINE BESYLATE [Concomitant]
     Dosage: 10 MG, QD
     Route: 048
     Dates: start: 20131028
  10. ONDANSETRON HYDROCHLORIDE [Concomitant]
     Dosage: 4 MG, TID
     Route: 048
     Dates: start: 20131112
  11. TYLENOL                            /00020001/ [Concomitant]
     Dosage: 325 MG, BID
     Route: 048
  12. ASPIRIN CHILDREN [Concomitant]
     Dosage: 81 MG, QD
     Route: 048
  13. BYSTOLIC [Concomitant]
     Dosage: 10 MG, 1/2 QD
     Route: 048
  14. PLAVIX [Concomitant]
     Dosage: 75 MG, QD
     Route: 048
  15. SPIRIVA HANDIHALER [Concomitant]
     Dosage: 18 MUG, AS NECESSARY
  16. CASODEX [Concomitant]
  17. LASIX                              /00032601/ [Concomitant]
     Dosage: 120 MG, BID
     Route: 048

REACTIONS (7)
  - Acute pulmonary oedema [Fatal]
  - Cardiac failure congestive [Fatal]
  - Renal failure [Fatal]
  - Skin lesion [Unknown]
  - Nasal congestion [Unknown]
  - Back pain [Unknown]
  - Constipation [Unknown]
